FAERS Safety Report 6165619-9 (Version None)
Quarter: 2009Q2

REPORT INFORMATION
  Report Type: 
  Country: None (occurrence: None)
  Receive Date: 20090421
  Receipt Date: 20080708
  Transmission Date: 20091009
  Serious: No
  Sender: FDA-Public Use
  Company Number: 2008044423

PATIENT
  Age: 58 Year
  Sex: Female
  Weight: 122.9248 kg

DRUGS (10)
  1. LYRICA [Suspect]
     Indication: FIBROMYALGIA
     Dosage: 150 MG (75 MG, 2 IN 1 D)
     Dates: start: 20080401
  2. LYRICA [Suspect]
     Indication: PAIN
     Dosage: 150 MG (75 MG, 2 IN 1 D)
     Dates: start: 20080401
  3. KETAMINE HCL [Suspect]
     Dates: start: 20080505
  4. ANECTINE [Suspect]
  5. DESFLURANE (DESFLURANE) [Suspect]
     Dates: start: 20080505
  6. LOPRESSOR [Concomitant]
  7. ZOLOFT [Concomitant]
  8. ATROVENT [Concomitant]
  9. PRO-AIR (PROCATEROL HYDROCHLORIDE) [Concomitant]
  10. BENICAR HCT [Concomitant]

REACTIONS (3)
  - HYPOTENSION [None]
  - HYPOTHYROIDISM [None]
  - URINARY TRACT INFECTION [None]
